FAERS Safety Report 8963052 (Version 1)
Quarter: 2012Q4

REPORT INFORMATION
  Report Type: Spontaneous
  Country: NZ (occurrence: None)
  Receive Date: 20121205
  Receipt Date: 20121205
  Transmission Date: 20130627
  Serious: Yes (Other)
  Sender: FDA-Public Use
  Company Number: COL_12696_2012

PATIENT
  Age: 63 Year
  Sex: Female

DRUGS (15)
  1. COLGATE SENSITIVE WHITENING FOR SENSITIVE TEETH AND CAVITY PROTECTION [Suspect]
     Indication: DENTAL CARIES
     Route: 048
     Dates: start: 201209
  2. COLGATE SENSITIVE PRO RELIEF ENAMEL REPAIR [Suspect]
     Indication: SENSITIVITY OF TEETH
     Route: 048
     Dates: start: 201209
  3. DIFFLAM [Suspect]
     Indication: PRODUCT USED FOR UNKNOWN INDICATION
     Route: 048
     Dates: start: 20120903
  4. OXYCODONE [Concomitant]
  5. SYMBICORT [Concomitant]
  6. CHOLECALCIFEROL [Concomitant]
  7. SALBUTAMOL [Concomitant]
  8. VITAMIN B COMPLEX [Concomitant]
  9. LEVOTHYROXINE [Concomitant]
  10. CODEINE PHOSPHATE [Concomitant]
  11. ALPRAZOLAM [Concomitant]
  12. CLONIDIPINE [Concomitant]
  13. GABAPENTIN [Concomitant]
  14. NEO-CYTAMEN [Concomitant]
  15. MOBIC [Concomitant]

REACTIONS (10)
  - Chest pain [None]
  - Back pain [None]
  - Oral discomfort [None]
  - Anxiety [None]
  - Paraesthesia oral [None]
  - Hypersensitivity [None]
  - Rash [None]
  - Throat tightness [None]
  - Dysphonia [None]
  - Myocardial infarction [None]
